FAERS Safety Report 13587701 (Version 4)
Quarter: 2017Q3

REPORT INFORMATION
  Report Type: Spontaneous
  Country: GB (occurrence: GB)
  Receive Date: 20170526
  Receipt Date: 20170721
  Transmission Date: 20171127
  Serious: Yes (Other)
  Sender: FDA-Public Use
  Company Number: GB-009507513-1705GBR013229

PATIENT
  Age: 49 Year
  Sex: Female
  Weight: 97 kg

DRUGS (6)
  1. SERTRALINE HYDROCHLORIDE. [Concomitant]
     Active Substance: SERTRALINE HYDROCHLORIDE
  2. PREDNISOLONE. [Concomitant]
     Active Substance: PREDNISOLONE
  3. DORZOLAMIDE HYDROCHLORIDE. [Suspect]
     Active Substance: DORZOLAMIDE HYDROCHLORIDE
     Indication: OPEN ANGLE GLAUCOMA
     Dosage: 2 GTT, QD
     Route: 047
     Dates: start: 20170512, end: 20170513
  4. AZITHROMYCIN ANHYDROUS. [Concomitant]
     Active Substance: AZITHROMYCIN ANHYDROUS
  5. FLIXOTIDE [Concomitant]
     Active Substance: FLUTICASONE PROPIONATE
  6. SEREVENT DISKUS [Concomitant]
     Active Substance: SALMETEROL XINAFOATE

REACTIONS (4)
  - Dyspnoea [Recovered/Resolved]
  - Visual acuity reduced [Not Recovered/Not Resolved]
  - Eyelid oedema [Recovering/Resolving]
  - Eye pain [Recovered/Resolved]

NARRATIVE: CASE EVENT DATE: 20170512
